FAERS Safety Report 10596498 (Version 1)
Quarter: 2014Q4

REPORT INFORMATION
  Report Type: Report from Study
  Country: US (occurrence: US)
  Receive Date: 20141120
  Receipt Date: 20141120
  Transmission Date: 20150529
  Serious: Yes (Hospitalization)
  Sender: FDA-Public Use
  Company Number: PHEH2014US023010

PATIENT
  Sex: Male

DRUGS (2)
  1. TOBRAMYCIN. [Suspect]
     Active Substance: TOBRAMYCIN
     Indication: BRONCHIECTASIS
  2. TOBRAMYCIN. [Suspect]
     Active Substance: TOBRAMYCIN
     Indication: PSEUDOMONAS INFECTION
     Dosage: 300 MG, TWICE DAILY EVERY OTHER MONTH
     Route: 055

REACTIONS (4)
  - Increased bronchial secretion [Unknown]
  - Infection [Unknown]
  - Respiratory tract congestion [Unknown]
  - Chest discomfort [Unknown]
